FAERS Safety Report 11509220 (Version 2)
Quarter: 2015Q4

REPORT INFORMATION
  Report Type: Spontaneous
  Country: CH (occurrence: CH)
  Receive Date: 20150915
  Receipt Date: 20151204
  Transmission Date: 20160304
  Serious: Yes (Other)
  Sender: FDA-Public Use
  Company Number: CH-LPDUSPRD-20150691

PATIENT
  Age: 27 Year
  Sex: Female

DRUGS (1)
  1. FERINJECT [Suspect]
     Active Substance: FERRIC CARBOXYMALTOSE
     Dosage: 200 MG (2 TOTAL)
     Route: 040
     Dates: start: 20150702, end: 20150706

REACTIONS (5)
  - Swelling face [Unknown]
  - Exposure during pregnancy [Unknown]
  - Infusion site swelling [Unknown]
  - Fatigue [Unknown]
  - Local swelling [Unknown]

NARRATIVE: CASE EVENT DATE: 201507
